FAERS Safety Report 7228447-9 (Version None)
Quarter: 2011Q1

REPORT INFORMATION
  Report Type: 
  Country: None (occurrence: None)
  Receive Date: 20110114
  Receipt Date: 20110107
  Transmission Date: 20110831
  Serious: Yes (Hospitalization, Other)
  Sender: FDA-Public Use
  Company Number: US-MERCK-1008USA00274

PATIENT
  Age: 51 Year
  Sex: Female
  Weight: 58 kg

DRUGS (3)
  1. FOSAMAX [Suspect]
     Route: 048
     Dates: start: 19960801, end: 20090305
  2. PAXIL [Concomitant]
     Indication: HOT FLUSH
     Route: 065
     Dates: start: 19920101
  3. FOSAMAX [Suspect]
     Indication: OSTEOPENIA
     Route: 048
     Dates: start: 19960801, end: 20090305

REACTIONS (23)
  - FALLOPIAN TUBE DISORDER [None]
  - ANXIETY [None]
  - MYALGIA [None]
  - VITAMIN D DEFICIENCY [None]
  - TOOTH DISORDER [None]
  - TONSILLAR DISORDER [None]
  - TOOTH FRACTURE [None]
  - FRACTURE NONUNION [None]
  - ARTHRALGIA [None]
  - STRESS [None]
  - DRUG HYPERSENSITIVITY [None]
  - OSTEOPOROSIS [None]
  - ARTHROPATHY [None]
  - DEVICE FAILURE [None]
  - LACERATION [None]
  - APPENDIX DISORDER [None]
  - SPINAL OSTEOARTHRITIS [None]
  - JOINT HYPEREXTENSION [None]
  - FEMUR FRACTURE [None]
  - FALL [None]
  - AMNESIA [None]
  - IMPAIRED HEALING [None]
  - FATIGUE [None]
